FAERS Safety Report 8339141-5 (Version None)
Quarter: 2012Q2

REPORT INFORMATION
  Report Type: 
  Country: None (occurrence: None)
  Receive Date: 20120507
  Receipt Date: 20120501
  Transmission Date: 20120825
  Serious: No
  Sender: FDA-Public Use
  Company Number: US-PFIZER INC-2012109880

PATIENT
  Sex: Male

DRUGS (4)
  1. LYRICA [Suspect]
     Dosage: 75 MG, 1X/DAY
  2. LYRICA [Suspect]
     Dosage: UNK
  3. HYDROCODONE BITARTRATE [Suspect]
     Dosage: UNK
  4. OXYCODONE [Concomitant]
     Dosage: 30 MG, 4X/DAY

REACTIONS (1)
  - MYALGIA [None]
